FAERS Safety Report 18295401 (Version 1)
Quarter: 2020Q3

REPORT INFORMATION
  Report Type: Spontaneous
  Country: US (occurrence: US)
  Receive Date: 20200922
  Receipt Date: 20200922
  Transmission Date: 20201103
  Serious: No
  Sender: FDA-Public Use
  Company Number: US-SA-2020SA257650

PATIENT

DRUGS (1)
  1. DUPIXENT [Suspect]
     Active Substance: DUPILUMAB
     Dosage: 300 MG, QOW
     Route: 058
     Dates: start: 202008

REACTIONS (6)
  - Wheezing [Unknown]
  - Chest discomfort [Unknown]
  - Asthma [Unknown]
  - Dyspnoea [Unknown]
  - Decreased activity [Unknown]
  - Eczema [Unknown]

NARRATIVE: CASE EVENT DATE: 2020
